FAERS Safety Report 9184259 (Version 2)
Quarter: 2013Q2

REPORT INFORMATION
  Report Type: Spontaneous
  Country: RO (occurrence: RO)
  Receive Date: 20130322
  Receipt Date: 20130422
  Transmission Date: 20140414
  Serious: No
  Sender: FDA-Public Use
  Company Number: RO-ELI_LILLY_AND_COMPANY-RO201303004812

PATIENT
  Age: 9 Year
  Sex: Male
  Weight: 39 kg

DRUGS (2)
  1. STRATTERA [Suspect]
     Indication: ATTENTION DEFICIT/HYPERACTIVITY DISORDER
     Dosage: 10 MG, QD
     Dates: start: 20121019, end: 20121025
  2. STRATTERA [Suspect]
     Dosage: 18 MG, QD
     Dates: start: 20121026, end: 20121115

REACTIONS (1)
  - Yellow skin [Recovered/Resolved]
